FAERS Safety Report 13664255 (Version 1)
Quarter: 2017Q2

REPORT INFORMATION
  Report Type: Report from Study
  Country: US (occurrence: US)
  Receive Date: 20170619
  Receipt Date: 20170619
  Transmission Date: 20170830
  Serious: Yes (Hospitalization)
  Sender: FDA-Public Use
  Company Number: US-JNJFOC-20170614394

PATIENT
  Age: 76 Year
  Sex: Male

DRUGS (1)
  1. IMBRUVICA [Suspect]
     Active Substance: IBRUTINIB
     Indication: CHRONIC LYMPHOCYTIC LEUKAEMIA
     Route: 048
     Dates: start: 20160406

REACTIONS (6)
  - Clostridium difficile infection [Unknown]
  - Drug dose omission [Recovered/Resolved]
  - Memory impairment [Unknown]
  - Dehydration [Unknown]
  - Hypotension [Unknown]
  - Skin cancer [Unknown]

NARRATIVE: CASE EVENT DATE: 2017
